FAERS Safety Report 4826503-3 (Version None)
Quarter: 2005Q4

REPORT INFORMATION
  Report Type: 
  Country: None (occurrence: None)
  Receive Date: 20051014
  Receipt Date: 20050711
  Transmission Date: 20060501
  Serious: No
  Sender: FDA-Public Use
  Company Number: 2005075581

PATIENT
  Age: 85 Year
  Sex: Female
  Weight: 72.5755 kg

DRUGS (6)
  1. MACUGEN [Suspect]
     Indication: CHOROIDAL NEOVASCULARISATION
     Dosage: (1 IN 6 WK), INTRAOCULAR
     Dates: start: 20050513
  2. QUIXIN [Suspect]
     Indication: INFECTION PROPHYLAXIS
     Dosage: (QID INTERVAL: EVERY DAY)
     Dates: start: 20050513, end: 20050520
  3. DIGITALIS [Concomitant]
  4. TOPROL (METOPROLOL) [Concomitant]
  5. WARFARIN SODIUM [Concomitant]
  6. VITAMINS [Concomitant]

REACTIONS (8)
  - DIPLOPIA [None]
  - EYE HAEMORRHAGE [None]
  - EYE PAIN [None]
  - EYE PRURITUS [None]
  - EYE SWELLING [None]
  - FEELING ABNORMAL [None]
  - OCULAR HYPERAEMIA [None]
  - VISION BLURRED [None]
